FAERS Safety Report 14402229 (Version 2)
Quarter: 2018Q1

REPORT INFORMATION
  Report Type: Spontaneous
  Country: FR (occurrence: FR)
  Receive Date: 20180117
  Receipt Date: 20180220
  Transmission Date: 20180509
  Serious: Yes (Disabling)
  Sender: FDA-Public Use
  Company Number: FR-TEVA-2017-FR-841742

PATIENT
  Age: 32 Year
  Sex: Male

DRUGS (57)
  1. TETRAZEPAM [Suspect]
     Active Substance: TETRAZEPAM
     Route: 048
     Dates: start: 20110705
  2. RIVOTRIL [Suspect]
     Active Substance: CLONAZEPAM
     Route: 065
     Dates: start: 20110510
  3. TEMERIT [Suspect]
     Active Substance: NEBIVOLOL
     Route: 048
     Dates: start: 20101115, end: 20110509
  4. DEXTROPROPOXYPHENE, PARACETAMOL [Suspect]
     Active Substance: ACETAMINOPHEN\PROPOXYPHENE
     Indication: PAIN
     Dates: start: 20100606
  5. AMITRIPTYLINE HYDROCHLORIDE. [Suspect]
     Active Substance: AMITRIPTYLINE HYDROCHLORIDE
     Indication: NECK PAIN
     Dosage: 5-8 DROPS
     Dates: start: 20110219
  6. UVEDOSE [Concomitant]
     Active Substance: CHOLECALCIFEROL
     Dosage: 1000000 IU
     Route: 065
     Dates: start: 20110219
  7. COVATINE [Concomitant]
     Route: 048
     Dates: start: 20120620, end: 201207
  8. IBUPROFEN. [Concomitant]
     Active Substance: IBUPROFEN
     Dates: start: 20101213
  9. TETRAZEPAM [Suspect]
     Active Substance: TETRAZEPAM
     Route: 048
     Dates: start: 20110726
  10. RIVOTRIL [Suspect]
     Active Substance: CLONAZEPAM
     Indication: NECK PAIN
     Route: 065
     Dates: start: 20110718
  11. SOLUPRED (PREDNISOLONE SODIUM SULFOBENZOATE) [Concomitant]
     Active Substance: PREDNISOLONE SODIUM METAZOATE
     Route: 048
     Dates: start: 20110726
  12. PRAXINOR (THEODRENALINE + CAFEDRINE) [Concomitant]
     Active Substance: CAFEDRINE\THEODRENALINE
     Route: 048
     Dates: start: 20101127
  13. CAFEDRINE HYDROCHLORIDE/THEODRENALINE HYDROCHLORIDE [Concomitant]
     Dates: start: 20101127
  14. HYDROXYZINE [Suspect]
     Active Substance: HYDROXYZINE HYDROCHLORIDE
     Dates: start: 20120131
  15. ALUMINUM HYDROXIDE\DIMETHICONE\MAGNESIUM HYDROXIDE [Suspect]
     Active Substance: ALUMINUM HYDROXIDE\DIMETHICONE\MAGNESIUM HYDROXIDE
     Indication: PAIN
     Route: 048
     Dates: start: 20100606
  16. IXEL [Suspect]
     Active Substance: MILNACIPRAN HYDROCHLORIDE
     Indication: PANIC ATTACK
     Route: 048
     Dates: start: 20110322
  17. CLONAZEPAM. [Suspect]
     Active Substance: CLONAZEPAM
     Indication: NECK PAIN
     Dosage: 5-4 DROPS
     Dates: start: 20110328
  18. MIOREL (THIOCOLCHICOSIDE) [Concomitant]
     Active Substance: THIOCOLCHICOSIDE
     Route: 048
     Dates: start: 20100606
  19. MIOREL (THIOCOLCHICOSIDE) [Concomitant]
     Active Substance: THIOCOLCHICOSIDE
     Route: 048
     Dates: start: 20101210
  20. STRESAM [Concomitant]
     Active Substance: ETIFOXINE
     Route: 048
     Dates: start: 20120327
  21. PAROXETINE. [Suspect]
     Active Substance: PAROXETINE
     Dosage: 2 TO 3 WEEKS
     Route: 048
     Dates: start: 20110201
  22. TEMERIT [Suspect]
     Active Substance: NEBIVOLOL
     Route: 048
     Dates: start: 20110510, end: 201207
  23. CLONAZEPAM. [Suspect]
     Active Substance: CLONAZEPAM
     Dosage: 5 - 8 DROPS
     Dates: start: 20110219, end: 20110302
  24. DOLIPRANE [Concomitant]
     Active Substance: ACETAMINOPHEN
     Route: 048
     Dates: start: 20101213
  25. TANGANIL [Concomitant]
     Active Substance: ACETYLLEUCINE
     Route: 048
     Dates: start: 20110303
  26. PREDNISOLONE. [Concomitant]
     Active Substance: PREDNISOLONE
     Dates: start: 20110726
  27. TETRAZEPAM [Suspect]
     Active Substance: TETRAZEPAM
     Route: 048
     Dates: start: 20110228
  28. CITALOPRAM HYDROBROMIDE. [Suspect]
     Active Substance: CITALOPRAM HYDROBROMIDE
     Dates: start: 20110318
  29. RIVOTRIL [Suspect]
     Active Substance: CLONAZEPAM
     Dosage: 5-8 DROPS
     Route: 065
     Dates: start: 20110328
  30. THIOCOLCHICOSIDE [Concomitant]
     Active Substance: THIOCOLCHICOSIDE
     Dosage: 3 DOSAGE FORMS DAILY;
     Dates: start: 20101213
  31. COLECALCIFEROL [Concomitant]
     Active Substance: CHOLECALCIFEROL
     Dosage: 1000000 IU
     Dates: start: 20110219
  32. ETIFOXINE [Concomitant]
     Active Substance: ETIFOXINE
  33. ATARAX [Suspect]
     Active Substance: HYDROXYZINE HYDROCHLORIDE
     Route: 048
     Dates: start: 20120131, end: 201207
  34. DOLIPRANE [Concomitant]
     Active Substance: ACETAMINOPHEN
     Route: 048
     Dates: start: 20110201
  35. DIAZEPAM. [Concomitant]
     Active Substance: DIAZEPAM
     Dates: start: 20101115, end: 20101115
  36. ETHANOLAMINE ACETYLLEUCINATE [Concomitant]
     Dosage: 3 DOSAGE FORMS DAILY;
     Dates: start: 20110303
  37. RIVOTRIL [Suspect]
     Active Substance: CLONAZEPAM
     Dosage: 5-8 DROPS
     Route: 065
     Dates: start: 20110219, end: 20110302
  38. CLONAZEPAM. [Suspect]
     Active Substance: CLONAZEPAM
     Dates: start: 20110303, end: 20110327
  39. CLONAZEPAM. [Suspect]
     Active Substance: CLONAZEPAM
     Dates: start: 20110510
  40. CLONAZEPAM. [Suspect]
     Active Substance: CLONAZEPAM
     Dates: start: 20110718
  41. MIOREL (THIOCOLCHICOSIDE) [Concomitant]
     Active Substance: THIOCOLCHICOSIDE
     Route: 048
     Dates: start: 20101213
  42. MIOREL (THIOCOLCHICOSIDE) [Concomitant]
     Active Substance: THIOCOLCHICOSIDE
     Route: 048
     Dates: start: 20110201
  43. NUREFLEX [Concomitant]
     Active Substance: IBUPROFEN
     Route: 048
     Dates: start: 20101213
  44. THIOCOLCHICOSIDE [Concomitant]
     Active Substance: THIOCOLCHICOSIDE
     Dates: start: 20100606
  45. THIOCOLCHICOSIDE [Concomitant]
     Active Substance: THIOCOLCHICOSIDE
     Dosage: 3 DOSAGE FORMS DAILY;
     Dates: start: 20110201
  46. RIVOTRIL [Suspect]
     Active Substance: CLONAZEPAM
     Route: 065
     Dates: start: 20110303, end: 20110327
  47. TEMERIT [Suspect]
     Active Substance: NEBIVOLOL
     Indication: CARDIAC DISORDER
     Route: 048
     Dates: start: 20110718, end: 201207
  48. SEROPRAM (CITALOPRAM HYDROBROMIDE) [Suspect]
     Active Substance: CITALOPRAM HYDROBROMIDE
     Route: 048
     Dates: start: 20110318
  49. LAROXYL [Suspect]
     Active Substance: AMITRIPTYLINE HYDROCHLORIDE
     Indication: NECK PAIN
     Dosage: 5-8 DROPS
     Route: 065
     Dates: start: 20110219
  50. MILNACIPRAN [Suspect]
     Active Substance: MILNACIPRAN
     Indication: PANIC ATTACK
     Dosage: 2 DOSAGE FORMS DAILY;
     Dates: start: 20110322
  51. DOLIPRANE [Concomitant]
     Active Substance: ACETAMINOPHEN
     Route: 048
     Dates: start: 20110328
  52. VALIUM [Concomitant]
     Active Substance: DIAZEPAM
     Route: 051
     Dates: start: 20101115, end: 20101115
  53. PARACETAMOL [Concomitant]
     Active Substance: ACETAMINOPHEN
     Dosage: 3 DOSAGE FORMS DAILY;
     Dates: start: 20110201
  54. PARACETAMOL [Concomitant]
     Active Substance: ACETAMINOPHEN
     Dosage: 3 DOSAGE FORMS DAILY;
     Dates: start: 20110328
  55. PARACETAMOL [Concomitant]
     Active Substance: ACETAMINOPHEN
     Dosage: 3 DOSAGE FORMS DAILY;
     Dates: start: 20101213
  56. THIOCOLCHICOSIDE [Concomitant]
     Active Substance: THIOCOLCHICOSIDE
     Dosage: 3 DOSAGE FORMS DAILY;
     Dates: start: 20101210
  57. CAPTODIAME HYDROCHLORIDE [Concomitant]
     Dates: start: 20120620

REACTIONS (24)
  - Musculoskeletal pain [Unknown]
  - Suicidal ideation [Recovered/Resolved]
  - Hypoacusis [Recovered/Resolved]
  - Visual impairment [Recovered/Resolved]
  - Asthenia [Unknown]
  - Tinnitus [Recovered/Resolved]
  - Drug intolerance [Recovering/Resolving]
  - Dyspnoea [Unknown]
  - Pain in extremity [Unknown]
  - Intervertebral disc disorder [Unknown]
  - Malaise [Recovered/Resolved]
  - Anxiety [Recovered/Resolved]
  - Post-traumatic stress disorder [Recovered/Resolved]
  - Hallucination, auditory [Recovered/Resolved]
  - Tachycardia [Recovered/Resolved]
  - Panic attack [Recovered/Resolved]
  - Agoraphobia [Recovered/Resolved]
  - Psychotic disorder [Recovered/Resolved]
  - Hypertonia [Unknown]
  - Neurosis [Recovered/Resolved]
  - Adverse event [Unknown]
  - Memory impairment [Recovered/Resolved]
  - Personal relationship issue [Recovered/Resolved]
  - Erectile dysfunction [Recovering/Resolving]

NARRATIVE: CASE EVENT DATE: 2010
